FAERS Safety Report 19576934 (Version 1)
Quarter: 2021Q3

REPORT INFORMATION
  Report Type: Spontaneous
  Country: US (occurrence: US)
  Receive Date: 20210719
  Receipt Date: 20210719
  Transmission Date: 20211014
  Serious: No
  Sender: FDA-Public Use
  Company Number: US-GLENMARK PHARMACEUTICALS-2020GMK048520

PATIENT

DRUGS (2)
  1. MUPIROCIN OINTMENT USP, 2% [Suspect]
     Active Substance: MUPIROCIN
     Indication: INFECTION
     Dosage: UNK, OD
     Route: 061
     Dates: start: 2020, end: 2020
  2. MUPIROCIN OINTMENT USP, 2% [Suspect]
     Active Substance: MUPIROCIN
     Dosage: UNK, OD
     Route: 061
     Dates: start: 20200629

REACTIONS (1)
  - Application site pain [Not Recovered/Not Resolved]

NARRATIVE: CASE EVENT DATE: 2020
